FAERS Safety Report 21219063 (Version 3)
Quarter: 2022Q4

REPORT INFORMATION
  Report Type: Report from Study
  Country: CN (occurrence: CN)
  Receive Date: 20220816
  Receipt Date: 20221007
  Transmission Date: 20230112
  Serious: Yes (Hospitalization)
  Sender: FDA-Public Use
  Company Number: CN-BRISTOL-MYERS SQUIBB COMPANY-2022-088300

PATIENT
  Age: 58 Year
  Sex: Male
  Weight: 50 kg

DRUGS (3)
  1. PLACEBO [Suspect]
     Active Substance: UNSPECIFIED INGREDIENT
     Indication: Non-small cell lung cancer
     Dosage: MOST RECENT DOSE OF BLINDED NIVOLUMAB/PLACEBO STUDY THERAPY ON 12-JUL-2022.?DOSE DELAYED
     Route: 042
     Dates: start: 20211124
  2. CARBOPLATIN [Suspect]
     Active Substance: CARBOPLATIN
     Indication: Non-small cell lung cancer
     Dosage: MOST RECENT DOSE (544 MG) WAS ON 26-JAN-2022?DOSE DELAYED
     Route: 065
     Dates: start: 20211124
  3. PACLITAXEL [Suspect]
     Active Substance: PACLITAXEL
     Indication: Non-small cell lung cancer
     Dosage: MOST RECENT DOSE WAS ON 26-JAN-2022?DOSE DELAYED
     Route: 065
     Dates: start: 20211124

REACTIONS (1)
  - Platelet count decreased [Recovered/Resolved]

NARRATIVE: CASE EVENT DATE: 20220808
